FAERS Safety Report 4375933-5 (Version None)
Quarter: 2004Q2

REPORT INFORMATION
  Report Type: 
  Country: None (occurrence: None)
  Receive Date: 20040611
  Receipt Date: 20040411
  Transmission Date: 20050107
  Serious: Yes (Death, Disabling)
  Sender: FDA-Public Use
  Company Number: PHRM2004DZ01560

PATIENT
  Age: 54 Year
  Sex: Female
  Weight: 110 kg

DRUGS (7)
  1. LESCOL [Suspect]
     Indication: HYPERCHOLESTEROLAEMIA
     Dosage: 40 MG, QD
     Route: 048
     Dates: start: 20031213
  2. TRIATEC [Concomitant]
     Dosage: 5 MG, UNK
     Route: 048
  3. SECTRAL [Concomitant]
     Dosage: 200 MG, BID
     Route: 048
  4. LASILIX [Concomitant]
     Dosage: 80 MG, QD
     Route: 048
  5. NICARDIPINE HCL [Concomitant]
     Dosage: 50 MG, BID
     Route: 048
  6. INSUMAN [Concomitant]
     Indication: DIABETES MELLITUS
     Dosage: UNK, UNK
  7. COLCHICINE [Concomitant]
     Dosage: 1 DF, QD
     Route: 048

REACTIONS (2)
  - DEATH [None]
  - MYALGIA [None]
